FAERS Safety Report 9656763 (Version 1)
Quarter: 2013Q4

REPORT INFORMATION
  Report Type: Spontaneous
  Country: US (occurrence: None)
  Receive Date: 20131029
  Receipt Date: 20131029
  Transmission Date: 20140711
  Serious: No
  Sender: FDA-Public Use
  Company Number: None

PATIENT
  Sex: Male

DRUGS (1)
  1. ENBREL [Suspect]
     Indication: PSORIASIS
     Route: 048
     Dates: start: 20130823

REACTIONS (3)
  - Pyrexia [None]
  - Swollen tongue [None]
  - Pharyngeal oedema [None]
